FAERS Safety Report 21348799 (Version 1)
Quarter: 2022Q3

REPORT INFORMATION
  Report Type: Spontaneous
  Country: US (occurrence: US)
  Receive Date: 20220919
  Receipt Date: 20220919
  Transmission Date: 20221026
  Serious: Yes (Other)
  Sender: FDA-Public Use
  Company Number: US-SA-SAC20220916001322

PATIENT

DRUGS (2)
  1. ZANTAC [Suspect]
     Active Substance: RANITIDINE HYDROCHLORIDE
     Dosage: OVER THE COUNTER ZANTAC FROM APPROXIMATELY 2006 TO 2019
     Route: 065
     Dates: start: 2006, end: 2019
  2. RANITIDINE [Suspect]
     Active Substance: RANITIDINE
     Dosage: OVER THE COUNTER RANITIDINE FROM APPROXIMATELY 2006 TO 2019
     Route: 065
     Dates: start: 2006, end: 2019

REACTIONS (1)
  - Renal cancer [Unknown]
